FAERS Safety Report 6215486-X (Version None)
Quarter: 2009Q2

REPORT INFORMATION
  Report Type: 
  Country: None (occurrence: None)
  Receive Date: 20090603
  Receipt Date: 20090520
  Transmission Date: 20091009
  Serious: Yes (Hospitalization)
  Sender: FDA-Public Use
  Company Number: 006495

PATIENT
  Age: 67 Year
  Sex: Male

DRUGS (1)
  1. PLETAL [Suspect]
     Indication: PERIPHERAL ARTERIAL OCCLUSIVE DISEASE
     Dosage: 100 MG, BID
     Route: 048
     Dates: start: 20090327, end: 20090330

REACTIONS (2)
  - BRAIN STEM HAEMORRHAGE [None]
  - GASTRIC ULCER [None]
